FAERS Safety Report 4660328-7 (Version None)
Quarter: 2005Q2

REPORT INFORMATION
  Report Type: 
  Country: None (occurrence: None)
  Receive Date: 20050511
  Receipt Date: 20050511
  Transmission Date: 20051028
  Serious: Yes (Life-Threatening)
  Sender: FDA-Public Use
  Company Number: None

PATIENT
  Age: 79 Year
  Sex: Male
  Weight: 94 kg

DRUGS (14)
  1. XIGRIS [Suspect]
     Indication: SEPSIS
     Dosage: IV  24UG/KG/HR
     Route: 042
     Dates: start: 20050113, end: 20050117
  2. ATROVENT [Concomitant]
  3. ALTEPLASE [Concomitant]
  4. ASPIRIN [Concomitant]
  5. COLACE [Concomitant]
  6. EPOETIN ALFA [Concomitant]
  7. FENTANYL [Concomitant]
  8. FERROUS SULFATE TAB [Concomitant]
  9. FLUNISOLIDE [Concomitant]
  10. GATIFLOXACIN [Concomitant]
  11. NOVOLIN R [Concomitant]
  12. MICONAZOLE [Concomitant]
  13. ZOSYN [Concomitant]
  14. PRILOSEC [Concomitant]

REACTIONS (4)
  - FAECAL OCCULT BLOOD POSITIVE [None]
  - HAEMATOCRIT DECREASED [None]
  - HAEMORRHAGE [None]
  - INFUSION SITE REACTION [None]
